FAERS Safety Report 7949634-8 (Version None)
Quarter: 2011Q4

REPORT INFORMATION
  Report Type: 
  Country: None (occurrence: None)
  Receive Date: 20111130
  Receipt Date: 20111128
  Transmission Date: 20120403
  Serious: Yes (Life-Threatening, Other)
  Sender: FDA-Public Use
  Company Number: CA-PFIZER INC-2011289756

PATIENT

DRUGS (1)
  1. MORPHINE SULFATE [Suspect]
     Indication: SURGERY
     Dosage: UNK
     Route: 008

REACTIONS (1)
  - RESPIRATORY DEPRESSION [None]
